FAERS Safety Report 4577272-6 (Version None)
Quarter: 2005Q1

REPORT INFORMATION
  Report Type: 
  Country: None (occurrence: None)
  Receive Date: 20050203
  Receipt Date: 20050121
  Transmission Date: 20050727
  Serious: Yes (Other)
  Sender: FDA-Public Use
  Company Number: 200510053BBE

PATIENT

DRUGS (16)
  1. GAMUNEX [Suspect]
     Indication: IMMUNODEFICIENCY COMMON VARIABLE
     Dosage: INTRAVENOUS
     Route: 042
     Dates: start: 20040610
  2. GAMUNEX [Suspect]
     Dosage: INTRAVENOUS
     Route: 042
     Dates: start: 20040610
  3. GAMUNEX [Suspect]
     Dosage: 10 G, INTRAVENOUS
     Route: 042
     Dates: start: 20040708
  4. GAMUNEX [Suspect]
     Dosage: 5 G, INTRAVENOUS
     Route: 042
     Dates: start: 20040708
  5. GAMUNEX [Suspect]
     Dosage: 10 G, INTRAVENOUS
     Route: 042
     Dates: start: 20040806
  6. GAMUNEX [Suspect]
     Dosage: 5 G, INTRAVENOUS
     Route: 042
     Dates: start: 20040806
  7. GAMUNEX [Suspect]
     Dosage: 10 G, INTRAVENOUS
     Route: 042
     Dates: start: 20040909
  8. GAMUNEX [Suspect]
     Dosage: 5 G, INTRAVENOUS
     Route: 042
     Dates: start: 20040909
  9. GAMUNEX [Suspect]
     Dosage: 10 G, INTRAVENOUS
     Route: 042
     Dates: start: 20041014
  10. GAMUNEX [Suspect]
     Dosage: 5 G, INTRAVENOUS
     Route: 042
     Dates: start: 20041014
  11. GAMUNEX [Suspect]
     Dosage: 10 G, INTRAVENOUS
     Route: 042
     Dates: start: 20041123
  12. GAMUNEX [Suspect]
     Dosage: 5 G, INTRAVENOUS
     Route: 042
     Dates: start: 20041123
  13. GAMUNEX [Suspect]
     Dosage: 10 G, INTRAVENOUS
     Route: 042
     Dates: start: 20050113
  14. GAMUNEX [Suspect]
     Dosage: 5 G, INTRAVENOUS
     Dates: start: 20050113
  15. GAMIMUNE N 10% [Suspect]
     Indication: IMMUNODEFICIENCY COMMON VARIABLE
     Dosage: 45 G, TOTAL DAILY, INTRAVENOUS
     Route: 042
     Dates: start: 20040506
  16. GAMIMUNE N 10% [Suspect]
     Dosage: 45 G, TOTAL DAILY, INTRAVENOUS
     Route: 042
     Dates: start: 20040506

REACTIONS (2)
  - HEPATITIS B POSITIVE [None]
  - HIP ARTHROPLASTY [None]
